FAERS Safety Report 6510446-3 (Version None)
Quarter: 2009Q4

REPORT INFORMATION
  Report Type: 
  Country: None (occurrence: None)
  Receive Date: 20091221
  Receipt Date: 20091221
  Transmission Date: 20100525
  Serious: Yes (Hospitalization)
  Sender: FDA-Public Use
  Company Number: None

PATIENT
  Sex: Male
  Weight: 60.9 kg

DRUGS (3)
  1. IRINOTECAN HCL [Suspect]
     Dosage: 160 MG EVERY 2 WEEKS IV
     Route: 042
     Dates: start: 20091207, end: 20091207
  2. CETUXIMAB [Suspect]
     Dosage: 460 MG EVERY 2 WEEKS IV
     Route: 042
     Dates: start: 20091207, end: 20091207
  3. OXALIPLATIN [Concomitant]

REACTIONS (4)
  - ANAEMIA [None]
  - DIARRHOEA [None]
  - GASTROINTESTINAL HAEMORRHAGE [None]
  - HYPOTENSION [None]
